FAERS Safety Report 4317123-8 (Version None)
Quarter: 2004Q1

REPORT INFORMATION
  Report Type: 
  Country: None (occurrence: None)
  Receive Date: 20040312
  Receipt Date: 20040225
  Transmission Date: 20041129
  Serious: Yes (Life-Threatening)
  Sender: FDA-Public Use
  Company Number: 2001-BP-01415 (1)

PATIENT
  Age: 18 Month
  Sex: Female

DRUGS (4)
  1. NEVIRAPINE [Suspect]
     Indication: HUMAN IMMUNODEFICIENCY VIRUS TRANSMISSION
     Dosage: (200 MG), PO
     Route: 048
  2. NEVIRAPINE [Suspect]
     Indication: PROPHYLAXIS AGAINST HIV INFECTION
     Dosage: (200 MG), PO
     Route: 048
  3. ACETAMINOPHEN [Concomitant]
  4. PROCHLORPERAZINE [Concomitant]

REACTIONS (5)
  - COMPLICATIONS OF MATERNAL EXPOSURE TO THERAPEUTIC DRUGS [None]
  - DIZZINESS [None]
  - HAEMOGLOBIN DECREASED [None]
  - MALAISE [None]
  - TUBERCULOSIS [None]
